FAERS Safety Report 7783710-8 (Version None)
Quarter: 2011Q3

REPORT INFORMATION
  Report Type: 
  Country: None (occurrence: None)
  Receive Date: 20110926
  Receipt Date: 20110914
  Transmission Date: 20111222
  Serious: Yes (Death)
  Sender: FDA-Public Use
  Company Number: 2011S1000305

PATIENT
  Sex: Male

DRUGS (6)
  1. INOMAX [Suspect]
     Indication: OXYGEN SATURATION DECREASED
     Dosage: 20 PPM;CONT;INH
     Route: 055
     Dates: start: 20110829
  2. SURVANTA [Concomitant]
  3. MORPHINE [Concomitant]
  4. DOBUTAMINE HCL [Concomitant]
  5. ROCURONIUM [Concomitant]
  6. THAM [Concomitant]

REACTIONS (2)
  - GENERAL PHYSICAL HEALTH DETERIORATION [None]
  - CIRCULATORY COLLAPSE [None]
